FAERS Safety Report 9732751 (Version 2)
Quarter: 2014Q1

REPORT INFORMATION
  Report Type: Spontaneous
  Country: FR (occurrence: FR)
  Receive Date: 20131204
  Receipt Date: 20140127
  Transmission Date: 20141002
  Serious: Yes (Other)
  Sender: FDA-Public Use
  Company Number: FR-GLAXOSMITHKLINE-B0948137A

PATIENT
  Age: 54 Year
  Sex: Male

DRUGS (14)
  1. ZOPHREN [Suspect]
     Indication: VOMITING
     Dosage: 16MG PER DAY
     Route: 048
     Dates: start: 20131012, end: 20131016
  2. ALIMTA [Suspect]
     Indication: LUNG ADENOCARCINOMA METASTATIC
     Dosage: 1140MG CYCLIC
     Route: 042
     Dates: start: 20131010, end: 20131010
  3. CARBOPLATIN [Suspect]
     Indication: LUNG ADENOCARCINOMA METASTATIC
     Dosage: 885MG CYCLIC
     Route: 042
     Dates: start: 20131010, end: 20131010
  4. PRIMPERAN [Suspect]
     Indication: VOMITING
     Dosage: 1UNIT THREE TIMES PER DAY
     Route: 048
     Dates: start: 20131012
  5. LEXOMIL [Suspect]
     Indication: ANXIOLYTIC THERAPY
     Dosage: 1TAB PER DAY
     Route: 048
     Dates: start: 20131011
  6. INNOHEP [Suspect]
     Indication: PULMONARY EMBOLISM
     Dosage: 18000IUAX PER DAY
     Route: 058
     Dates: start: 20131004
  7. TOPALGIC (FRANCE) [Suspect]
     Indication: ANALGESIC THERAPY
     Dosage: 50MG THREE TIMES PER DAY
     Route: 048
     Dates: start: 20131005
  8. TOPALGIC (FRANCE) [Suspect]
     Indication: ANALGESIC THERAPY
     Dosage: 100MG TWICE PER DAY
     Route: 048
     Dates: start: 20131005
  9. CAPTOPRIL [Concomitant]
  10. ATORVASTATINE [Concomitant]
  11. PANTOPRAZOLE [Concomitant]
  12. FOLIC ACID [Concomitant]
  13. SOLUPRED [Concomitant]
  14. COLCHICINE [Concomitant]

REACTIONS (2)
  - Generalised erythema [Recovering/Resolving]
  - Prurigo [Recovering/Resolving]
